FAERS Safety Report 7504188-5 (Version None)
Quarter: 2011Q2

REPORT INFORMATION
  Report Type: 
  Country: None (occurrence: None)
  Receive Date: 20110525
  Receipt Date: 20110522
  Transmission Date: 20111010
  Serious: Yes (Other)
  Sender: FDA-Public Use
  Company Number: TR-ABBOTT-11P-161-0727508-00

PATIENT
  Age: 60 Year
  Sex: Male

DRUGS (1)
  1. TRANDOLAPRIL [Suspect]
     Indication: HYPERTENSION
     Route: 048

REACTIONS (1)
  - RETINAL ARTERY STENOSIS [None]
